FAERS Safety Report 5149966-5 (Version None)
Quarter: 2006Q4

REPORT INFORMATION
  Report Type: 
  Country: None (occurrence: None)
  Receive Date: 20061108
  Receipt Date: 20061025
  Transmission Date: 20070319
  Serious: Yes (Other)
  Sender: FDA-Public Use
  Company Number: 2006131682

PATIENT
  Age: 47 Year
  Sex: Female
  Weight: 54.4316 kg

DRUGS (1)
  1. CHANTIX [Suspect]
     Indication: SMOKING CESSATION THERAPY
     Dosage: 0.5 MG (0.5 MG, 1 IN 1 D)
     Dates: start: 20061019

REACTIONS (9)
  - BACK DISORDER [None]
  - CRYING [None]
  - EMOTIONAL DISORDER [None]
  - FEELING ABNORMAL [None]
  - INCORRECT DOSE ADMINISTERED [None]
  - PANIC ATTACK [None]
  - SKIN DISORDER [None]
  - SLEEP DISORDER [None]
  - UNEVALUABLE EVENT [None]
